FAERS Safety Report 20935275 (Version 1)
Quarter: 2022Q2

REPORT INFORMATION
  Report Type: Spontaneous
  Country: IR (occurrence: IR)
  Receive Date: 20220609
  Receipt Date: 20220609
  Transmission Date: 20220720
  Serious: Yes (Hospitalization, Other)
  Sender: FDA-Public Use
  Company Number: IR-SUN PHARMACEUTICAL INDUSTRIES LTD-2022R1-339649

PATIENT
  Sex: Female
  Weight: 3.35 kg

DRUGS (2)
  1. METHYLDOPA [Suspect]
     Active Substance: METHYLDOPA
     Indication: Hypertension
     Dosage: 250 MILLIGRAM, DAILY
     Route: 064
  2. ASPIRIN [Suspect]
     Active Substance: ASPIRIN
     Indication: Hypertension
     Dosage: 80 MILLIGRAM, DAILY
     Route: 064

REACTIONS (2)
  - Respiratory acidosis [Unknown]
  - Foetal exposure during pregnancy [Unknown]
